FAERS Safety Report 9550410 (Version 1)
Quarter: 2013Q3

REPORT INFORMATION
  Report Type: Spontaneous
  Country: US (occurrence: US)
  Receive Date: 20130924
  Receipt Date: 20130924
  Transmission Date: 20140515
  Serious: No
  Sender: FDA-Public Use
  Company Number: US-SANOFI-AVENTIS-2013SA076476

PATIENT
  Age: 56 Year
  Sex: Female

DRUGS (1)
  1. AUBAGIO [Suspect]
     Indication: MULTIPLE SCLEROSIS
     Dosage: TAKEN TO- TWO WEEKS AGO
     Route: 048
     Dates: start: 20130509

REACTIONS (3)
  - Sinus disorder [Not Recovered/Not Resolved]
  - Balance disorder [Unknown]
  - Somnolence [Unknown]
